FAERS Safety Report 25073059 (Version 1)
Quarter: 2025Q1

REPORT INFORMATION
  Report Type: Spontaneous
  Country: US (occurrence: US)
  Receive Date: 20250313
  Receipt Date: 20250313
  Transmission Date: 20250408
  Serious: No
  Sender: TEVA
  Company Number: US-TEVA-VS-3303918

PATIENT
  Age: 71 Year
  Sex: Female

DRUGS (1)
  1. AUSTEDO [Suspect]
     Active Substance: DEUTETRABENAZINE
     Indication: Tardive dyskinesia
     Dosage: 2 TABLETS BY MOUTH TWICE DAILY
     Route: 048

REACTIONS (3)
  - Symptom recurrence [Unknown]
  - Product use in unapproved indication [Unknown]
  - Product use issue [Unknown]
